FAERS Safety Report 18271109 (Version 5)
Quarter: 2021Q1

REPORT INFORMATION
  Report Type: Report from Study
  Country: MX (occurrence: MX)
  Receive Date: 20200915
  Receipt Date: 20210323
  Transmission Date: 20210419
  Serious: Yes (Other)
  Sender: FDA-Public Use
  Company Number: MX-SEATTLE GENETICS-2020SGN04077

PATIENT
  Sex: Male
  Weight: 56 kg

DRUGS (1)
  1. BRENTUXIMAB VEDOTIN [Suspect]
     Active Substance: BRENTUXIMAB VEDOTIN
     Indication: HODGKIN^S DISEASE
     Dosage: 95 MILLIGRAM
     Route: 042
     Dates: start: 20200306

REACTIONS (2)
  - Cutaneous T-cell lymphoma [Not Recovered/Not Resolved]
  - Paraesthesia [Unknown]
